FAERS Safety Report 7167902-7 (Version None)
Quarter: 2010Q4

REPORT INFORMATION
  Report Type: 
  Country: None (occurrence: None)
  Receive Date: 20101216
  Receipt Date: 20101214
  Transmission Date: 20110411
  Serious: Yes (Death)
  Sender: FDA-Public Use
  Company Number: CO-PFIZER INC-2010167290

PATIENT
  Age: 74 Year
  Sex: Female

DRUGS (4)
  1. LIPITOR [Suspect]
     Indication: DYSLIPIDAEMIA
     Dosage: 10 MG, 1X/DAY
     Dates: start: 20040922
  2. OLMESARTAN MEDOXOMIL AND HYDROCHLOROTHIZIDE [Suspect]
     Dosage: 20 + 12.5 MG DAILY
  3. METOPROLOL [Concomitant]
     Dosage: 100 MG, 2X/DAY
  4. INSULIN [Concomitant]
     Dosage: 80-100 IU/ML, UNK, UNK

REACTIONS (1)
  - DEATH [None]
